FAERS Safety Report 21745455 (Version 3)
Quarter: 2023Q2

REPORT INFORMATION
  Report Type: Spontaneous
  Country: DE (occurrence: DE)
  Receive Date: 20221219
  Receipt Date: 20230414
  Transmission Date: 20230721
  Serious: Yes (Hospitalization)
  Sender: FDA-Public Use
  Company Number: DE-SAMSUNG BIOEPIS-SB-2022-30653

PATIENT
  Age: 31 Year
  Sex: Female
  Weight: 61 kg

DRUGS (3)
  1. CARBOPLATIN [Suspect]
     Active Substance: CARBOPLATIN
     Indication: Breast cancer female
     Dosage: UNK, Q3W (5 AUC, Q 21 DAYS) (DATE OF LAST DOSE: 25 NOV 2022)
     Route: 042
     Dates: start: 20220823
  2. PACLITAXEL [Suspect]
     Active Substance: PACLITAXEL
     Indication: Breast cancer female
     Dosage: 80 MG/M2, QW (DATE OF LAST ADMINISTRATION: 25 NOV 2022)
     Route: 042
     Dates: start: 20220823
  3. PERTUZUMAB [Suspect]
     Active Substance: PERTUZUMAB
     Indication: Breast cancer female
     Dosage: 420 MG, Q3W, 420MG (Q 21 DAYS)
     Route: 042
     Dates: start: 20220823

REACTIONS (3)
  - Neutropenia [Recovered/Resolved]
  - Catheter site infection [Recovered/Resolved]
  - COVID-19 [Recovered/Resolved]

NARRATIVE: CASE EVENT DATE: 20221124
